FAERS Safety Report 6647593-1 (Version None)
Quarter: 2010Q1

REPORT INFORMATION
  Report Type: 
  Country: None (occurrence: None)
  Receive Date: 20100323
  Receipt Date: 20100323
  Transmission Date: 20100710
  Serious: Yes (Hospitalization, Other)
  Sender: FDA-Public Use
  Company Number: None

PATIENT
  Age: 68 Year
  Sex: Female
  Weight: 100.6985 kg

DRUGS (5)
  1. AVASTIN [Suspect]
     Indication: BREAST CANCER
     Dosage: 1483MG IV Q 21 DAYS
     Route: 042
     Dates: start: 20090706, end: 20091019
  2. WELLBUTRIN [Concomitant]
  3. HYDROMORPHONE HCL [Concomitant]
  4. ZOLPIDEM TARTRATE [Concomitant]
  5. ZANTAC [Concomitant]

REACTIONS (23)
  - ABSCESS SOFT TISSUE [None]
  - BREAST ABSCESS [None]
  - BREAST CELLULITIS [None]
  - BREAST NECROSIS [None]
  - BREAST PAIN [None]
  - ENTEROBACTER INFECTION [None]
  - ERYTHEMA [None]
  - EXCORIATION [None]
  - INCISION SITE COMPLICATION [None]
  - PROCEDURAL SITE REACTION [None]
  - RADIATION SKIN INJURY [None]
  - SECRETION DISCHARGE [None]
  - SEROMA [None]
  - SKIN EXFOLIATION [None]
  - SKIN HYPERTROPHY [None]
  - SKIN NECROSIS [None]
  - SOFT TISSUE NECROSIS [None]
  - SUBCUTANEOUS ABSCESS [None]
  - WOUND DEHISCENCE [None]
  - WOUND INFECTION BACTERIAL [None]
  - WOUND INFECTION PSEUDOMONAS [None]
  - WOUND INFECTION STAPHYLOCOCCAL [None]
  - WOUND NECROSIS [None]
